FAERS Safety Report 5016608-9 (Version None)
Quarter: 2006Q2

REPORT INFORMATION
  Report Type: 
  Country: None (occurrence: None)
  Receive Date: 20060602
  Receipt Date: 20060530
  Transmission Date: 20061013
  Serious: Yes (Other)
  Sender: FDA-Public Use
  Company Number: US-GLAXOSMITHKLINE-A0607276A

PATIENT
  Sex: Female

DRUGS (2)
  1. ALBUTEROL SULFATE AUTOHALER [Suspect]
     Indication: ASTHMA
     Route: 065
  2. NO CONCURRENT MEDICATION [Concomitant]

REACTIONS (6)
  - ANOSMIA [None]
  - ASTHMA [None]
  - COUGH [None]
  - DYSPNOEA [None]
  - SINUS DISORDER [None]
  - WHEEZING [None]
